FAERS Safety Report 11050998 (Version 1)
Quarter: 2015Q2

REPORT INFORMATION
  Report Type: Report from Study
  Country: US (occurrence: US)
  Receive Date: 20150421
  Receipt Date: 20150421
  Transmission Date: 20150821
  Serious: Yes (Hospitalization, Other)
  Sender: FDA-Public Use
  Company Number: US-ASTELLAS-2015US011716

PATIENT
  Age: 74 Year
  Sex: Female

DRUGS (7)
  1. TYLENOL [Concomitant]
     Active Substance: ACETAMINOPHEN
     Indication: PRODUCT USED FOR UNKNOWN INDICATION
     Dosage: UNK UNK, UNKNOWN FREQ.
     Route: 065
  2. RITUXAN [Suspect]
     Active Substance: RITUXIMAB
     Indication: LYMPHOMA
     Dosage: UNK, UNKNOWN FREQ.
     Route: 042
     Dates: start: 20000420
  3. LASIX [Concomitant]
     Active Substance: FUROSEMIDE
     Indication: PRODUCT USED FOR UNKNOWN INDICATION
     Dosage: UNK UNK, UNKNOWN FREQ.
     Route: 065
     Dates: start: 20000420
  4. HYDROCORTISONE. [Concomitant]
     Active Substance: HYDROCORTISONE
     Indication: PRODUCT USED FOR UNKNOWN INDICATION
     Dosage: UNK, UNKNOWN FREQ.
     Route: 065
  5. ERLOTINIB [Suspect]
     Active Substance: ERLOTINIB
     Indication: PRODUCT USED FOR UNKNOWN INDICATION
     Dosage: UNK, UNKNOWN FREQ.
     Route: 065
  6. ZAROXOLYN [Concomitant]
     Active Substance: METOLAZONE
     Indication: PRODUCT USED FOR UNKNOWN INDICATION
     Dosage: UNK UNK, UNKNOWN FREQ.
     Route: 065
  7. DEMEROL [Concomitant]
     Active Substance: MEPERIDINE HYDROCHLORIDE
     Indication: PRODUCT USED FOR UNKNOWN INDICATION
     Dosage: UNK UNK, UNKNOWN FREQ.
     Route: 065

REACTIONS (24)
  - Generalised oedema [Unknown]
  - Abdominal distension [Unknown]
  - Bowel movement irregularity [Unknown]
  - Musculoskeletal discomfort [Unknown]
  - Decreased appetite [Unknown]
  - Pyrexia [Unknown]
  - Cough [Unknown]
  - Calcinosis [Unknown]
  - Ascites [Unknown]
  - Mental status changes [Unknown]
  - Muscular weakness [Unknown]
  - Pneumonia pneumococcal [Unknown]
  - Pleural effusion [Unknown]
  - Cardiomegaly [Unknown]
  - Asthenia [Unknown]
  - Dyspnoea exertional [Unknown]
  - Cardiac failure [Unknown]
  - Flatulence [Unknown]
  - Constipation [Unknown]
  - Malignant neoplasm progression [Unknown]
  - Hyponatraemia [Unknown]
  - Breast swelling [Unknown]
  - Inguinal mass [Unknown]
  - Neck pain [Unknown]

NARRATIVE: CASE EVENT DATE: 20000727
